FAERS Safety Report 8472673-8 (Version None)
Quarter: 2012Q2

REPORT INFORMATION
  Report Type: 
  Country: None (occurrence: None)
  Receive Date: 20120627
  Receipt Date: 20120626
  Transmission Date: 20120825
  Serious: No
  Sender: FDA-Public Use
  Company Number: US-BAYER-2012-063380

PATIENT
  Age: 42 Year
  Sex: Female

DRUGS (1)
  1. GADAVIST [Suspect]
     Dosage: 7 ML, UNK
     Route: 042
     Dates: start: 20120625

REACTIONS (2)
  - NAUSEA [None]
  - DIZZINESS [None]
